FAERS Safety Report 8440198-1 (Version None)
Quarter: 2012Q2

REPORT INFORMATION
  Report Type: 
  Country: None (occurrence: None)
  Receive Date: 20120615
  Receipt Date: 20120613
  Transmission Date: 20120825
  Serious: Yes (Hospitalization, Other)
  Sender: FDA-Public Use
  Company Number: FR-ROCHE-1057628

PATIENT
  Age: 77 Year
  Sex: Female

DRUGS (19)
  1. CISPLATIN [Suspect]
     Route: 042
     Dates: start: 20120229
  2. IPERTEN [Concomitant]
     Route: 065
  3. NEXIUM [Concomitant]
     Route: 065
  4. XELODA [Suspect]
     Indication: GASTRIC CANCER
     Route: 048
     Dates: start: 20120208, end: 20120222
  5. XELODA [Suspect]
     Route: 048
     Dates: start: 20120229, end: 20120314
  6. ALLOPURINOL [Concomitant]
     Route: 065
  7. XENETIX [Concomitant]
     Dosage: DOSE: 350 (UNITS UNSPECIFIED)
     Route: 065
  8. HERCEPTIN [Suspect]
     Route: 065
     Dates: start: 20120229
  9. BISOPROLOL FUMARATE AND HYDROCHLOROTHIAZIDE [Concomitant]
     Route: 065
  10. LOVENOX [Concomitant]
     Route: 065
  11. EMEND [Suspect]
     Indication: VOMITING
     Dosage: ON DAY 1, 2 AND 3 OF 14 DAY CYCLE
     Route: 065
     Dates: start: 20120208, end: 20120302
  12. KALEORID LP [Concomitant]
     Route: 065
  13. ZOFRAN [Concomitant]
     Route: 065
  14. LORAZEPAM [Concomitant]
     Route: 065
  15. HERCEPTIN [Suspect]
     Indication: GASTRIC CANCER
     Dates: start: 20120208, end: 20120229
  16. CISPLATIN [Suspect]
     Indication: PRODUCT USED FOR UNKNOWN INDICATION
     Route: 042
     Dates: start: 20120208, end: 20120229
  17. ACETAMINOPHEN [Concomitant]
     Route: 065
  18. TRAMADOL HCL [Concomitant]
     Dosage: AS REQUIRED
     Route: 065
  19. CORDARONE [Concomitant]
     Route: 065
     Dates: start: 20111115

REACTIONS (3)
  - NEUTROPENIA [None]
  - NEUTROPENIC COLITIS [None]
  - DIARRHOEA [None]
